FAERS Safety Report 6480331-4 (Version None)
Quarter: 2009Q4

REPORT INFORMATION
  Report Type: 
  Country: None (occurrence: None)
  Receive Date: 20091208
  Receipt Date: 20091118
  Transmission Date: 20100525
  Serious: Yes (Hospitalization)
  Sender: FDA-Public Use
  Company Number: US-SANOFI-AVENTIS-2009SA005867

PATIENT
  Age: 69 Year
  Sex: Female

DRUGS (3)
  1. LOVENOX [Suspect]
     Indication: THROMBOSIS PROPHYLAXIS
     Dates: start: 20090709
  2. PARACETAMOL W/PROPOXYPHENE [Concomitant]
  3. PROPRANOLOL [Concomitant]

REACTIONS (1)
  - ARTERIAL THROMBOSIS LIMB [None]
